FAERS Safety Report 23698628 (Version 1)
Quarter: 2024Q2

REPORT INFORMATION
  Report Type: Spontaneous
  Country: US (occurrence: US)
  Receive Date: 20240402
  Receipt Date: 20240402
  Transmission Date: 20240716
  Serious: No
  Sender: FDA-Public Use
  Company Number: US-SA-SAC20240327000530

PATIENT
  Sex: Male

DRUGS (1)
  1. DUPIXENT [Suspect]
     Active Substance: DUPILUMAB
     Indication: Dermatitis atopic
     Dosage: 300 MG, QOW
     Route: 058
     Dates: start: 202202

REACTIONS (8)
  - Rash [Unknown]
  - Dermatitis atopic [Unknown]
  - Rash erythematous [Unknown]
  - Pruritus [Unknown]
  - Burning sensation [Unknown]
  - Condition aggravated [Unknown]
  - Dry skin [Unknown]
  - Condition aggravated [Unknown]
